FAERS Safety Report 10091358 (Version 2)
Quarter: 2014Q2

REPORT INFORMATION
  Report Type: Spontaneous
  Country: US (occurrence: US)
  Receive Date: 20140421
  Receipt Date: 20140508
  Transmission Date: 20141212
  Serious: Yes (Other)
  Sender: FDA-Public Use
  Company Number: PHEH2014US007696

PATIENT
  Sex: Female

DRUGS (4)
  1. FOCALIN XR [Suspect]
     Dosage: 20 MG, UNK
  2. FISH OIL [Concomitant]
     Dosage: UNK UKN, UNK
  3. MULTI-VIT [Concomitant]
     Dosage: UNK UKN, UNK
  4. SUMATRIPTAN [Concomitant]
     Dosage: UNK UKN, UNK

REACTIONS (4)
  - Migraine [Unknown]
  - Headache [Unknown]
  - Product physical issue [Unknown]
  - Drug ineffective [Unknown]
